FAERS Safety Report 15488922 (Version 3)
Quarter: 2018Q4

REPORT INFORMATION
  Report Type: Spontaneous
  Country: US (occurrence: US)
  Receive Date: 20181011
  Receipt Date: 20181018
  Transmission Date: 20190205
  Serious: Yes (Other)
  Sender: FDA-Public Use
  Company Number: US-PFIZER INC-2018401487

PATIENT
  Age: 68 Year
  Sex: Female
  Weight: 46 kg

DRUGS (1)
  1. LYRICA [Suspect]
     Active Substance: PREGABALIN
     Indication: NEUROPATHY PERIPHERAL
     Dosage: 75 MG, 2X/DAY
     Route: 048
     Dates: end: 20180927

REACTIONS (11)
  - Loss of consciousness [Unknown]
  - Fall [Unknown]
  - Diarrhoea [Unknown]
  - Head injury [Unknown]
  - Musculoskeletal stiffness [Unknown]
  - Gait disturbance [Unknown]
  - Vomiting [Unknown]
  - Malaise [Unknown]
  - Insomnia [Unknown]
  - Peripheral coldness [Unknown]
  - Abdominal discomfort [Unknown]
